FAERS Safety Report 5358205-1 (Version None)
Quarter: 2007Q2

REPORT INFORMATION
  Report Type: 
  Country: None (occurrence: None)
  Receive Date: 20070530
  Receipt Date: 20061027
  Transmission Date: 20071010
  Serious: Yes (Hospitalization, Other)
  Sender: FDA-Public Use
  Company Number: US200605002554

PATIENT
  Age: 38 Year
  Sex: Male
  Weight: 111.1 kg

DRUGS (1)
  1. ZYPREXA [Suspect]
     Indication: BIPOLAR I DISORDER
     Dosage: SEE IMAGE
     Dates: start: 19980101, end: 19980101

REACTIONS (2)
  - BLOOD CHOLESTEROL ABNORMAL [None]
  - PANCREATITIS [None]
